FAERS Safety Report 12394517 (Version 3)
Quarter: 2016Q3

REPORT INFORMATION
  Report Type: Spontaneous
  Country: US (occurrence: US)
  Receive Date: 20160523
  Receipt Date: 20160713
  Transmission Date: 20161109
  Serious: No
  Sender: FDA-Public Use
  Company Number: US-PFIZER INC-2016236469

PATIENT
  Age: 57 Year
  Sex: Female
  Weight: 77.11 kg

DRUGS (4)
  1. GABAPENTIN. [Suspect]
     Active Substance: GABAPENTIN
     Indication: PAIN
     Dosage: UNK
     Dates: start: 2013
  2. XARELTO [Concomitant]
     Active Substance: RIVAROXABAN
     Indication: CARDIAC FIBRILLATION
     Dates: start: 2013, end: 2013
  3. GABAPENTIN. [Suspect]
     Active Substance: GABAPENTIN
     Dosage: 400 MG, 3X/DAY
  4. GABAPENTIN. [Suspect]
     Active Substance: GABAPENTIN
     Dosage: 1200 MG, DAILY

REACTIONS (10)
  - Herpes zoster [Recovering/Resolving]
  - Drug ineffective for unapproved indication [Not Recovered/Not Resolved]
  - Abdominal pain upper [Unknown]
  - Intentional product use issue [Unknown]
  - Intentional product misuse [Not Recovered/Not Resolved]
  - Musculoskeletal chest pain [Unknown]
  - Pain [Not Recovered/Not Resolved]
  - Pelvic pain [Unknown]
  - Dizziness [Recovered/Resolved]
  - Condition aggravated [Unknown]

NARRATIVE: CASE EVENT DATE: 2013
